FAERS Safety Report 5147831-0 (Version None)
Quarter: 2006Q4

REPORT INFORMATION
  Report Type: 
  Country: None (occurrence: None)
  Receive Date: 20061110
  Receipt Date: 20061101
  Transmission Date: 20070319
  Serious: Yes (Hospitalization)
  Sender: FDA-Public Use
  Company Number: CA-BRISTOL-MYERS SQUIBB COMPANY-13563184

PATIENT
  Age: 42 Year
  Sex: Female

DRUGS (4)
  1. CYCLOPHOSPHAMIDE [Suspect]
     Indication: BREAST CANCER
     Dates: start: 20060623, end: 20060623
  2. EPIRUBICIN [Suspect]
     Indication: BREAST CANCER
     Dates: start: 20060623, end: 20060623
  3. FLUOROURACIL [Suspect]
     Indication: BREAST CANCER
     Dates: start: 20060623, end: 20060623
  4. TRIPTORELIN [Suspect]
     Indication: BREAST CANCER
     Dates: start: 20060623, end: 20060623

REACTIONS (1)
  - GASTROINTESTINAL HAEMORRHAGE [None]
